FAERS Safety Report 6885794-8 (Version None)
Quarter: 2010Q3

REPORT INFORMATION
  Report Type: 
  Country: None (occurrence: None)
  Receive Date: 20100729
  Receipt Date: 20090206
  Transmission Date: 20110219
  Serious: Yes (Other)
  Sender: FDA-Public Use
  Company Number: US-PFIZER INC-2008096040

PATIENT
  Sex: Female

DRUGS (2)
  1. CELEBREX [Suspect]
  2. ANTIHYPERTENSIVES [Concomitant]

REACTIONS (2)
  - ARTHROPATHY [None]
  - HYPERTENSION [None]
